FAERS Safety Report 4361339-1 (Version None)
Quarter: 2004Q2

REPORT INFORMATION
  Report Type: 
  Country: None (occurrence: None)
  Receive Date: 20040521
  Receipt Date: 20040517
  Transmission Date: 20050107
  Serious: Yes (Death)
  Sender: FDA-Public Use
  Company Number: PHBS2004BR06549

PATIENT
  Age: 55 Year
  Sex: Female
  Weight: 65 kg

DRUGS (3)
  1. GLEEVEC [Suspect]
     Dosage: 400-600 MG/DAY
     Route: 048
     Dates: start: 20010901
  2. MORPHINE [Concomitant]
     Route: 048
  3. TRAMAL [Concomitant]
     Route: 048

REACTIONS (3)
  - CHRONIC MYELOID LEUKAEMIA [None]
  - PULMONARY OEDEMA [None]
  - RESPIRATORY FAILURE [None]
